FAERS Safety Report 7460577-9 (Version None)
Quarter: 2011Q2

REPORT INFORMATION
  Report Type: 
  Country: None (occurrence: None)
  Receive Date: 20110418
  Receipt Date: 20110408
  Transmission Date: 20111010
  Serious: Yes (Disabling)
  Sender: FDA-Public Use
  Company Number: 2011028181

PATIENT
  Age: 45 Year
  Sex: Male
  Weight: 78.0187 kg

DRUGS (3)
  1. SINGULAIR [Concomitant]
  2. HIZENTRA [Suspect]
     Indication: IMMUNODEFICIENCY COMMON VARIABLE
     Dosage: 8 G 1X/WEEK, 8 G (40 ML) WEEKLY VIA 3 SITES OVER 1-2 HOURS 20% CONCFENTRATION, SUBCUTANEOUS)
     Route: 058
     Dates: start: 20101017
  3. ACETAMINOPHEN [Concomitant]

REACTIONS (5)
  - INFLUENZA LIKE ILLNESS [None]
  - ARTHRALGIA [None]
  - UNEVALUABLE EVENT [None]
  - GOUT [None]
  - PAIN [None]
